FAERS Safety Report 6148259-7 (Version None)
Quarter: 2009Q2

REPORT INFORMATION
  Report Type: 
  Country: None (occurrence: None)
  Receive Date: 20090408
  Receipt Date: 20090406
  Transmission Date: 20091009
  Serious: Yes (Death, Life-Threatening, Hospitalization, Other)
  Sender: FDA-Public Use
  Company Number: ES-BAYER-200827465GPV

PATIENT
  Age: 66 Year
  Sex: Male
  Weight: 78 kg

DRUGS (13)
  1. SORAFENIB [Suspect]
     Indication: LUNG NEOPLASM MALIGNANT
     Route: 048
     Dates: start: 20081013, end: 20081020
  2. SORAFENIB [Suspect]
     Route: 048
     Dates: start: 20080908, end: 20080922
  3. GEMCITABINE HCL [Suspect]
     Indication: LUNG NEOPLASM MALIGNANT
     Dosage: LAST DOSE
     Route: 042
     Dates: start: 20080915, end: 20080915
  4. GEMCITABINE HCL [Suspect]
     Route: 042
     Dates: start: 20080908, end: 20080908
  5. GEMCITABINE HCL [Suspect]
     Route: 042
     Dates: start: 20081013, end: 20081013
  6. CISPLATIN [Suspect]
     Indication: LUNG NEOPLASM MALIGNANT
     Dosage: LAST DOSE
     Route: 042
     Dates: start: 20080908, end: 20080908
  7. CISPLATIN [Suspect]
     Dosage: LAST DOSE
     Route: 042
     Dates: start: 20081013, end: 20081013
  8. CODEISAN [Concomitant]
     Indication: HAEMOPTYSIS
     Route: 048
     Dates: start: 20080922
  9. RANITIDINA [Concomitant]
     Indication: PROPHYLAXIS AGAINST GASTROINTESTINAL ULCER
     Route: 048
     Dates: start: 20081017
  10. METOCLOPRAMIDE [Concomitant]
     Indication: VOMITING
     Route: 048
     Dates: start: 20081017
  11. NISTATIN [Concomitant]
     Indication: ANTIFUNGAL PROPHYLAXIS
     Route: 048
     Dates: start: 20081017
  12. DEXAMETHASONE TAB [Concomitant]
     Indication: ANTIEMETIC SUPPORTIVE CARE
     Route: 048
     Dates: start: 20081017, end: 20081019
  13. PANTOPRAZOL [Concomitant]
     Indication: GASTRIC PERFORATION
     Route: 042
     Dates: start: 20081020

REACTIONS (7)
  - FEBRILE NEUTROPENIA [None]
  - GASTRIC PERFORATION [None]
  - PERIPHERAL ISCHAEMIA [None]
  - PNEUMONIA [None]
  - THROMBOCYTOPENIA [None]
  - TUMOUR ASSOCIATED FEVER [None]
  - UPPER GASTROINTESTINAL HAEMORRHAGE [None]
